FAERS Safety Report 13496804 (Version 2)
Quarter: 2017Q2

REPORT INFORMATION
  Report Type: Spontaneous
  Country: DE (occurrence: DE)
  Receive Date: 20170428
  Receipt Date: 20170515
  Transmission Date: 20170830
  Serious: Yes (Life-Threatening, Hospitalization, Other)
  Sender: FDA-Public Use
  Company Number: DE-JNJFOC-20170422387

PATIENT
  Age: 78 Year
  Sex: Female

DRUGS (4)
  1. DARZALEX [Suspect]
     Active Substance: DARATUMUMAB
     Indication: PLASMA CELL MYELOMA
     Route: 042
     Dates: start: 20170206
  2. DIPHENHYDRAMINE. [Concomitant]
     Active Substance: DIPHENHYDRAMINE
     Dates: start: 20170206
  3. PREDNISOLONE. [Concomitant]
     Active Substance: PREDNISOLONE
     Dates: start: 20170206
  4. PCM [Concomitant]
     Dates: start: 20170206

REACTIONS (5)
  - Pulmonary oedema [Unknown]
  - Inappropriate schedule of drug administration [Unknown]
  - Oxygen saturation increased [Unknown]
  - Off label use [Unknown]
  - Hypertension [Unknown]
